FAERS Safety Report 10287761 (Version 1)
Quarter: 2014Q3

REPORT INFORMATION
  Report Type: Spontaneous
  Country: CH (occurrence: CH)
  Receive Date: 20140709
  Receipt Date: 20140709
  Transmission Date: 20150326
  Serious: Yes (Other)
  Sender: FDA-Public Use
  Company Number: CHPA2012CH016119

PATIENT
  Sex: Female

DRUGS (4)
  1. OTRIVIN [Suspect]
     Active Substance: XYLOMETAZOLINE
     Dosage: UNK, 3-4 DAYS
     Route: 045
     Dates: start: 201205, end: 20120531
  2. NEO-CITRAN [Suspect]
     Active Substance: ACETAMINOPHEN
     Dosage: UNK, 3-4 DAYS
     Dates: start: 201205, end: 20120531
  3. RESYL PLUS [Suspect]
     Active Substance: CODEINE PHOSPHATE\GUAIFENESIN
     Dosage: UNK, 3-4 DAYS
     Dates: start: 201205, end: 20120531
  4. SPEDIFEN [Suspect]
     Active Substance: IBUPROFEN
     Dosage: UNK, 3-4 DAYS
     Dates: start: 201205, end: 20120531

REACTIONS (2)
  - Maternal exposure during pregnancy [Unknown]
  - Abortion spontaneous [Unknown]
